FAERS Safety Report 8403964-4 (Version None)
Quarter: 2012Q2

REPORT INFORMATION
  Report Type: 
  Country: None (occurrence: None)
  Receive Date: 20120601
  Receipt Date: 20110927
  Transmission Date: 20120825
  Serious: No
  Sender: FDA-Public Use
  Company Number: US-NOVEN-11US003318

PATIENT
  Sex: Male
  Weight: 37.188 kg

DRUGS (3)
  1. SINGULAIR [Concomitant]
     Indication: SINUSITIS
  2. CEFDINIR [Concomitant]
     Indication: SINUSITIS
  3. DAYTRANA [Suspect]
     Indication: ATTENTION DEFICIT/HYPERACTIVITY DISORDER
     Dosage: 10 MG, QD
     Route: 062
     Dates: start: 20110927

REACTIONS (4)
  - PRODUCT QUALITY ISSUE [None]
  - DRUG ADMINISTRATION ERROR [None]
  - PSYCHOMOTOR HYPERACTIVITY [None]
  - INCORRECT DRUG ADMINISTRATION DURATION [None]
